FAERS Safety Report 5360419-1 (Version None)
Quarter: 2007Q2

REPORT INFORMATION
  Report Type: 
  Country: None (occurrence: None)
  Receive Date: 20070612
  Receipt Date: 20070529
  Transmission Date: 20071010
  Serious: Yes (Other)
  Sender: FDA-Public Use
  Company Number: MPS1-10685

PATIENT
  Age: 1 Year
  Sex: Female
  Weight: 9.7 kg

DRUGS (1)
  1. ALDURAZYME [Suspect]
     Indication: MUCOPOLYSACCHARIDOSIS I
     Dosage: 0.58 MG/KG QWK IV
     Route: 042
     Dates: start: 20070210

REACTIONS (6)
  - ATELECTASIS [None]
  - CENTRAL LINE INFECTION [None]
  - CLOSTRIDIUM DIFFICILE COLITIS [None]
  - PNEUMONIA [None]
  - PULMONARY PNEUMATOCELE [None]
  - STAPHYLOCOCCAL SEPSIS [None]
